FAERS Safety Report 21727906 (Version 1)
Quarter: 2022Q4

REPORT INFORMATION
  Report Type: Spontaneous
  Country: US (occurrence: None)
  Receive Date: 20221213
  Receipt Date: 20221213
  Transmission Date: 20230112
  Serious: No
  Sender: FDA-Public Use
  Company Number: None

PATIENT
  Age: 68 Year
  Sex: Female

DRUGS (1)
  1. CEVIMELINE [Suspect]
     Active Substance: CEVIMELINE
     Dosage: FREQUENCY : 3 TIMES A DAY;?
     Route: 048

REACTIONS (4)
  - Dyspnoea [None]
  - Hyperhidrosis [None]
  - Atrial fibrillation [None]
  - Arrhythmia [None]

NARRATIVE: CASE EVENT DATE: 20221113
